FAERS Safety Report 13340982 (Version 1)
Quarter: 2017Q1

REPORT INFORMATION
  Report Type: Spontaneous
  Country: US (occurrence: US)
  Receive Date: 20170315
  Receipt Date: 20170315
  Transmission Date: 20170428
  Serious: Yes (Hospitalization)
  Sender: FDA-Public Use
  Company Number: None

PATIENT
  Age: 71 Year
  Sex: Female

DRUGS (17)
  1. FOLIC ACID. [Concomitant]
     Active Substance: FOLIC ACID
  2. JANUVIA [Concomitant]
     Active Substance: SITAGLIPTIN PHOSPHATE
  3. HYDROCO/APAP [Concomitant]
     Active Substance: ACETAMINOPHEN\HYDROCODONE
  4. METOPROL TAR [Concomitant]
  5. LEVOTHYROXIN [Concomitant]
     Active Substance: LEVOTHYROXINE
  6. ELIQUIS [Concomitant]
     Active Substance: APIXABAN
  7. METHOTREXATE. [Concomitant]
     Active Substance: METHOTREXATE
  8. ATORVASTATIN [Concomitant]
     Active Substance: ATORVASTATIN
  9. CEFDINIR. [Concomitant]
     Active Substance: CEFDINIR
  10. ONETOUCH TES ULTRA BL [Concomitant]
  11. DULOXETINE. [Concomitant]
     Active Substance: DULOXETINE
  12. ORENCIA [Suspect]
     Active Substance: ABATACEPT
     Indication: RHEUMATOID ARTHRITIS
     Route: 058
     Dates: start: 201112
  13. LEVOTHYROXIN [Concomitant]
     Active Substance: LEVOTHYROXINE
  14. LOSARTAN/HCT [Concomitant]
     Active Substance: HYDROCHLOROTHIAZIDE\LOSARTAN POTASSIUM
  15. OXYBUTYNIN [Concomitant]
     Active Substance: OXYBUTYNIN
  16. FLUOCIN ACET [Concomitant]
  17. METOPROLOL ER [Concomitant]
     Active Substance: METOPROLOL SUCCINATE

REACTIONS (6)
  - Infusion related reaction [None]
  - Atrial fibrillation [None]
  - Hypothyroidism [None]
  - Sepsis [None]
  - Urinary tract infection [None]
  - Drug dose omission [None]

NARRATIVE: CASE EVENT DATE: 20170227
